FAERS Safety Report 18888503 (Version 1)
Quarter: 2021Q1

REPORT INFORMATION
  Report Type: Spontaneous
  Country: US (occurrence: US)
  Receive Date: 20210213
  Receipt Date: 20210213
  Transmission Date: 20210420
  Serious: No
  Sender: FDA-Public Use
  Company Number: US-SA-2021SA047744

PATIENT
  Sex: Female

DRUGS (3)
  1. DUPIXENT [Suspect]
     Active Substance: DUPILUMAB
     Indication: DERMATITIS ATOPIC
     Dosage: 300 MG, QOW
     Route: 058
     Dates: start: 20190518
  2. EUCRISA [Concomitant]
     Active Substance: CRISABOROLE
  3. VITAMIN C [Concomitant]
     Active Substance: ASCORBIC ACID

REACTIONS (9)
  - Eating disorder [Unknown]
  - Swelling of eyelid [Recovered/Resolved]
  - Poor quality sleep [Unknown]
  - Astigmatism [Recovered/Resolved]
  - Eyelid exfoliation [Recovered/Resolved]
  - Erythema [Recovered/Resolved]
  - Stomatitis [Unknown]
  - Stress [Unknown]
  - Myopia [Recovered/Resolved]
